FAERS Safety Report 8258902-4 (Version None)
Quarter: 2012Q2

REPORT INFORMATION
  Report Type: 
  Country: None (occurrence: None)
  Receive Date: 20120404
  Receipt Date: 20120326
  Transmission Date: 20120825
  Serious: Yes (Hospitalization)
  Sender: FDA-Public Use
  Company Number: ES-FRI-1000029528

PATIENT
  Age: 74 Year
  Sex: Female

DRUGS (4)
  1. FERO GRADUMET EXTENDED RELEASE [Concomitant]
     Indication: IRON DEFICIENCY ANAEMIA
     Route: 048
     Dates: start: 20120228, end: 20120301
  2. HIDROFEROL [Concomitant]
     Route: 048
     Dates: end: 20120301
  3. ESCITALOPRAM [Suspect]
     Indication: DEPRESSION
     Dosage: 10 MG
     Route: 048
     Dates: start: 20110101, end: 20120301
  4. AMILORIDE HCL AND HYDROCHLOROTHIAZIDE [Suspect]
     Dosage: 5 MG/50 MG
     Dates: start: 20110101, end: 20120301

REACTIONS (2)
  - HYPONATRAEMIA [None]
  - DRUG INTERACTION [None]
